FAERS Safety Report 8286704-1 (Version None)
Quarter: 2012Q2

REPORT INFORMATION
  Report Type: 
  Country: None (occurrence: None)
  Receive Date: 20120416
  Receipt Date: 20120404
  Transmission Date: 20120825
  Serious: Yes (Other)
  Sender: FDA-Public Use
  Company Number: US-BAYER-2012-033442

PATIENT
  Age: 35 Year
  Sex: Female
  Weight: 45 kg

DRUGS (1)
  1. ASPIRIN [Suspect]
     Indication: PYREXIA
     Dosage: 1 DF, UNK
     Route: 048

REACTIONS (5)
  - DYSPNOEA [None]
  - PAIN [None]
  - THROAT IRRITATION [None]
  - PHARYNGEAL OEDEMA [None]
  - HAEMOPTYSIS [None]
